FAERS Safety Report 6173719-2 (Version None)
Quarter: 2009Q2

REPORT INFORMATION
  Report Type: 
  Country: None (occurrence: None)
  Receive Date: 20090430
  Receipt Date: 20090421
  Transmission Date: 20091009
  Serious: Yes (Other)
  Sender: FDA-Public Use
  Company Number: PHEH2009US03969

PATIENT
  Sex: Female

DRUGS (1)
  1. CLOZAPINE [Suspect]
     Indication: BIPOLAR DISORDER
     Dosage: 500 MG, QHS
     Route: 048
     Dates: start: 20071001

REACTIONS (5)
  - AGITATION [None]
  - HYPERTENSION [None]
  - NERVOUSNESS [None]
  - PANIC REACTION [None]
  - PHAEOCHROMOCYTOMA [None]
